FAERS Safety Report 9152028 (Version 2)
Quarter: 2013Q1

REPORT INFORMATION
  Report Type: Report from Study
  Country: JP (occurrence: JP)
  Receive Date: 20130308
  Receipt Date: 20130326
  Transmission Date: 20140127
  Serious: Yes (Hospitalization)
  Sender: FDA-Public Use
  Company Number: JP-GLAXOSMITHKLINE-B0872450A

PATIENT
  Age: 81 Year
  Sex: Female
  Weight: 48 kg

DRUGS (2)
  1. TYKERB [Suspect]
     Indication: BREAST CANCER
     Route: 048
     Dates: start: 20120804, end: 20120812
  2. XELODA [Concomitant]
     Route: 048
     Dates: start: 20120804, end: 20120812

REACTIONS (2)
  - Jaundice [Recovering/Resolving]
  - Diarrhoea [Unknown]
